FAERS Safety Report 23924564 (Version 4)
Quarter: 2024Q2

REPORT INFORMATION
  Report Type: Spontaneous
  Country: US (occurrence: US)
  Receive Date: 20240531
  Receipt Date: 20240618
  Transmission Date: 20240716
  Serious: No
  Sender: FDA-Public Use
  Company Number: US-PFIZER INC-202400180442

PATIENT
  Age: 52 Year
  Sex: Female
  Weight: 91.63 kg

DRUGS (2)
  1. GENOTROPIN [Suspect]
     Active Substance: SOMATROPIN
     Indication: Growth hormone deficiency
     Dosage: 1.1 MG EVERY NIGHT
  2. GENOTROPIN [Suspect]
     Active Substance: SOMATROPIN
     Indication: Hypopituitarism

REACTIONS (9)
  - Device breakage [Unknown]
  - Device material issue [Unknown]
  - Device mechanical issue [Unknown]
  - Drug dose omission by device [Unknown]
  - Poor quality device used [Unknown]
  - Device delivery system issue [Unknown]
  - Expired device used [Unknown]
  - Device use error [Unknown]
  - Brain fog [Unknown]

NARRATIVE: CASE EVENT DATE: 20240101
